FAERS Safety Report 11658649 (Version 4)
Quarter: 2015Q4

REPORT INFORMATION
  Report Type: Spontaneous
  Country: BR (occurrence: BR)
  Receive Date: 20151026
  Receipt Date: 20151203
  Transmission Date: 20160304
  Serious: Yes (Other)
  Sender: FDA-Public Use
  Company Number: PHHY2015BR134711

PATIENT
  Sex: Female
  Weight: 80 kg

DRUGS (7)
  1. TORSILAX [Concomitant]
     Active Substance: ACETAMINOPHEN\CAFFEINE\CARISOPRODOL\DICLOFENAC
     Indication: PAIN
     Dosage: 1 DF, BID
     Route: 048
  2. QUETIAPINA [Concomitant]
     Active Substance: QUETIAPINE
     Indication: SLEEP DISORDER
     Dosage: 2 DF, QHS
     Route: 048
  3. DIPIRONA [Concomitant]
     Active Substance: METAMIZOLE
     Indication: FIBROMYALGIA
     Dosage: 2 DF, TID
     Route: 048
  4. ADVIL [Concomitant]
     Active Substance: IBUPROFEN
     Indication: PAIN
     Dosage: 2-3 DF, QD
     Route: 048
  5. CLONAZEPAN [Concomitant]
     Active Substance: CLONAZEPAM
     Indication: SLEEP DISORDER
     Dosage: 2 DF, QHS
     Route: 048
  6. FORASEQ [Suspect]
     Active Substance: BUDESONIDE\FORMOTEROL FUMARATE
     Indication: ASTHMA
     Dosage: 4 DF, QD (2 IN THE MORNING AND 2 AT NIGHT)
     Route: 055
  7. AMITRIPTILINA [Concomitant]
     Active Substance: AMITRIPTYLINE HYDROCHLORIDE
     Indication: FIBROMYALGIA
     Dosage: 2 DF, TID
     Route: 048

REACTIONS (7)
  - Tuberculosis [Recovering/Resolving]
  - Dementia Alzheimer^s type [Unknown]
  - Upper limb fracture [Recovering/Resolving]
  - Cardiac arrest [Recovered/Resolved]
  - Deafness [Not Recovered/Not Resolved]
  - Fall [Recovering/Resolving]
  - Incorrect dose administered [Unknown]
